FAERS Safety Report 13243598 (Version 2)
Quarter: 2017Q1

REPORT INFORMATION
  Report Type: Report from Study
  Country: US (occurrence: US)
  Receive Date: 20170216
  Receipt Date: 20170323
  Transmission Date: 20170428
  Serious: Yes (Death)
  Sender: FDA-Public Use
  Company Number: US-ACTELION-A-NJ2017-149893

PATIENT
  Age: 79 Year
  Sex: Female

DRUGS (6)
  1. FOSAMAX [Concomitant]
     Active Substance: ALENDRONATE SODIUM
  2. LORAZEPAM. [Concomitant]
     Active Substance: LORAZEPAM
     Indication: ANXIETY
     Dosage: 0.5 MG, Q6HRS PRN
     Route: 048
     Dates: start: 20170107, end: 20170118
  3. ALBUTEROL. [Concomitant]
     Active Substance: ALBUTEROL
  4. MORPHINE [Concomitant]
     Active Substance: MORPHINE
     Dosage: 20MG/ML; TAKE 0.25ML PO Q4H PRN
     Route: 048
     Dates: start: 20170107, end: 20170118
  5. OPSUMIT [Suspect]
     Active Substance: MACITENTAN
     Indication: PULMONARY HYPERTENSION
     Dosage: 10 MG, QD
     Route: 048
     Dates: start: 20170105, end: 20170108
  6. PREDNISONE. [Concomitant]
     Active Substance: PREDNISONE
     Dosage: 10 MG, AS DIRECTED PER PHYSICIAN
     Dates: start: 20170107, end: 20170118

REACTIONS (4)
  - Concomitant disease progression [Fatal]
  - Hypotension [Unknown]
  - Chronic obstructive pulmonary disease [Fatal]
  - Pulmonary hypertension [Fatal]
